FAERS Safety Report 22625391 (Version 1)
Quarter: 2023Q2

REPORT INFORMATION
  Report Type: Spontaneous
  Country: ES (occurrence: ES)
  Receive Date: 20230621
  Receipt Date: 20230621
  Transmission Date: 20230722
  Serious: Yes (Other)
  Sender: FDA-Public Use
  Company Number: ES-AEMPS-1351130

PATIENT
  Age: 87 Year
  Sex: Male

DRUGS (1)
  1. NOREPINEPHRINE [Suspect]
     Active Substance: NOREPINEPHRINE
     Indication: Hypotension
     Dosage: UNK
     Route: 040
     Dates: start: 20230303, end: 20230305

REACTIONS (2)
  - Injection site ulcer [Unknown]
  - Ecchymosis [Unknown]

NARRATIVE: CASE EVENT DATE: 20230305
